FAERS Safety Report 7129483-3 (Version None)
Quarter: 2010Q4

REPORT INFORMATION
  Report Type: 
  Country: None (occurrence: None)
  Receive Date: 20101130
  Receipt Date: 20101122
  Transmission Date: 20110411
  Serious: Yes (Hospitalization)
  Sender: FDA-Public Use
  Company Number: US-SANOFI-AVENTIS-2010SA071346

PATIENT
  Age: 79 Year
  Sex: Female

DRUGS (2)
  1. LANTUS [Suspect]
     Dosage: 10 TO 12 UNITS
     Route: 058
  2. OPTICLICK [Suspect]

REACTIONS (4)
  - BACK PAIN [None]
  - DEVICE MALFUNCTION [None]
  - DIABETIC FOOT [None]
  - SKIN ULCER [None]
